FAERS Safety Report 7711689-3 (Version None)
Quarter: 2011Q3

REPORT INFORMATION
  Report Type: 
  Country: None (occurrence: None)
  Receive Date: 20110826
  Receipt Date: 20110823
  Transmission Date: 20111222
  Serious: Yes (Hospitalization, Other)
  Sender: FDA-Public Use
  Company Number: US-JNJFOC-20110304706

PATIENT
  Sex: Female

DRUGS (2)
  1. LEVAQUIN [Suspect]
     Indication: SINUSITIS
     Route: 048
     Dates: start: 20090120, end: 20101119
  2. LEVAQUIN [Suspect]
     Indication: SINUS OPERATION
     Route: 048
     Dates: start: 20090120, end: 20101119

REACTIONS (4)
  - TENDONITIS [None]
  - EPICONDYLITIS [None]
  - MENTAL DISORDER [None]
  - SUICIDE ATTEMPT [None]
